FAERS Safety Report 12996539 (Version 3)
Quarter: 2017Q1

REPORT INFORMATION
  Report Type: Spontaneous
  Country: JP (occurrence: JP)
  Receive Date: 20161204
  Receipt Date: 20170209
  Transmission Date: 20170428
  Serious: Yes (Hospitalization, Other)
  Sender: FDA-Public Use
  Company Number: JP-GLAXOSMITHKLINE-JP2016JPN175959

PATIENT
  Age: 53 Year
  Sex: Male

DRUGS (5)
  1. LOXONIN [Concomitant]
     Active Substance: LOXOPROFEN SODIUM
     Dosage: UNK
  2. TAVEGIL [Suspect]
     Active Substance: CLEMASTINE FUMARATE
     Indication: DERMATITIS ATOPIC
     Dosage: UNK
     Route: 048
     Dates: end: 20161031
  3. LANSOPRAZOLE. [Concomitant]
     Active Substance: LANSOPRAZOLE
     Dosage: UNK
  4. IPD [Concomitant]
     Active Substance: SUPLATAST TOSILATE
     Dosage: UNK
  5. PREDNISOLONE. [Suspect]
     Active Substance: PREDNISOLONE
     Dosage: 60 MG, 1D
     Route: 065

REACTIONS (18)
  - Product use issue [Unknown]
  - Ill-defined disorder [Unknown]
  - Skin induration [Unknown]
  - Myalgia [Unknown]
  - Off label use [Unknown]
  - Arthralgia [Unknown]
  - Dysstasia [Unknown]
  - Oedema [Unknown]
  - Musculoskeletal pain [Recovered/Resolved]
  - Muscular weakness [Unknown]
  - Gait disturbance [Unknown]
  - Rales [Unknown]
  - Local swelling [Unknown]
  - Blood glucose increased [Recovered/Resolved]
  - Dermatomyositis [Unknown]
  - Tenderness [Unknown]
  - Grip strength decreased [Unknown]
  - Erythema [Unknown]

NARRATIVE: CASE EVENT DATE: 2016
